FAERS Safety Report 17194513 (Version 1)
Quarter: 2019Q4

REPORT INFORMATION
  Report Type: Spontaneous
  Country: GB (occurrence: GB)
  Receive Date: 20191224
  Receipt Date: 20191224
  Transmission Date: 20200122
  Serious: Yes (Life-Threatening, Other)
  Sender: FDA-Public Use
  Company Number: GB-CIPLA LTD.-2019GB08345

PATIENT

DRUGS (1)
  1. FINASTERIDE. [Suspect]
     Active Substance: FINASTERIDE
     Indication: ANDROGENETIC ALOPECIA
     Dosage: 1 MILLIGRAM, PER DAY
     Route: 048
     Dates: start: 20191122, end: 20191126

REACTIONS (5)
  - Anhedonia [Not Recovered/Not Resolved]
  - Libido decreased [Not Recovered/Not Resolved]
  - Decreased interest [Not Recovered/Not Resolved]
  - Suicidal ideation [Not Recovered/Not Resolved]
  - Testicular pain [Recovered/Resolved]

NARRATIVE: CASE EVENT DATE: 20191124
